FAERS Safety Report 11213685 (Version 1)
Quarter: 2015Q2

REPORT INFORMATION
  Report Type: Spontaneous
  Country: ES (occurrence: ES)
  Receive Date: 20150623
  Receipt Date: 20150623
  Transmission Date: 20150821
  Serious: Yes (Hospitalization)
  Sender: FDA-Public Use
  Company Number: ES-MYLANLABS-2015M1020902

PATIENT

DRUGS (1)
  1. METHOTREXATE [Suspect]
     Active Substance: METHOTREXATE
     Indication: PSORIASIS
     Dosage: 10 MG DAILY FOR 1 MONTH
     Route: 065

REACTIONS (5)
  - Toxicity to various agents [Recovered/Resolved]
  - Bicytopenia [Recovered/Resolved]
  - Skin ulcer [Recovered/Resolved]
  - Accidental overdose [Recovered/Resolved]
  - Incorrect dosage administered [Recovered/Resolved]
